FAERS Safety Report 7956984-8 (Version None)
Quarter: 2011Q4

REPORT INFORMATION
  Report Type: 
  Country: None (occurrence: None)
  Receive Date: 20111205
  Receipt Date: 20111205
  Transmission Date: 20120403
  Serious: Yes (Life-Threatening)
  Sender: FDA-Public Use
  Company Number: None

PATIENT
  Age: 48 Year
  Sex: Female

DRUGS (1)
  1. PHENYTOIN [Suspect]
     Indication: CONVULSION
     Dosage: 200 MG
     Route: 048

REACTIONS (3)
  - CONVULSION [None]
  - TREATMENT NONCOMPLIANCE [None]
  - DRUG DOSE OMISSION [None]
